FAERS Safety Report 8003410-9 (Version None)
Quarter: 2011Q4

REPORT INFORMATION
  Report Type: 
  Country: None (occurrence: None)
  Receive Date: 20111222
  Receipt Date: 20111215
  Transmission Date: 20120403
  Serious: Yes (Death, Hospitalization)
  Sender: FDA-Public Use
  Company Number: US-ABBOTT-11P-163-0885512-00

PATIENT
  Sex: Male
  Weight: 59.02 kg

DRUGS (9)
  1. ANDROGEL [Suspect]
     Indication: BLOOD TESTOSTERONE DECREASED
     Dates: start: 20100101, end: 20111201
  2. VITAMIN TAB [Concomitant]
     Indication: VITAMIN SUPPLEMENTATION
  3. VITAMIN D [Concomitant]
     Indication: VITAMIN SUPPLEMENTATION
  4. UNKNOWN CHEMOTHERAPY [Suspect]
     Indication: NEOPLASM MALIGNANT
     Dates: start: 20111101
  5. CELEXA [Concomitant]
     Indication: DEPRESSION
     Dates: end: 20111201
  6. VITAMIN C [Concomitant]
     Indication: VITAMIN SUPPLEMENTATION
  7. SPIRONOLACTONE [Concomitant]
     Indication: FLUID RETENTION
  8. SPIRONOLACTONE [Concomitant]
     Indication: LIVER INJURY
  9. PROPRANOLOL [Concomitant]
     Indication: HYPERTENSION
     Dates: end: 20111201

REACTIONS (4)
  - MOBILITY DECREASED [None]
  - NAUSEA [None]
  - NEOPLASM MALIGNANT [None]
  - DIARRHOEA [None]
